FAERS Safety Report 21487509 (Version 1)
Quarter: 2022Q4

REPORT INFORMATION
  Report Type: Spontaneous
  Country: US (occurrence: US)
  Receive Date: 20221020
  Receipt Date: 20221020
  Transmission Date: 20230113
  Serious: No
  Sender: FDA-Public Use
  Company Number: US-AMGEN-USASP2022177728

PATIENT

DRUGS (1)
  1. INFLIXIMAB [Suspect]
     Active Substance: INFLIXIMAB
     Indication: Sarcoidosis
     Dosage: 3-7.5 MILLIGRAM PER KILOGRAM, EVERY 4-8 WEEKS
     Route: 065

REACTIONS (3)
  - Infusion related reaction [Unknown]
  - Infection [Unknown]
  - Off label use [Unknown]
